FAERS Safety Report 8419969-3 (Version None)
Quarter: 2012Q2

REPORT INFORMATION
  Report Type: 
  Country: None (occurrence: None)
  Receive Date: 20120607
  Receipt Date: 20120530
  Transmission Date: 20120825
  Serious: Yes (Hospitalization, Other)
  Sender: FDA-Public Use
  Company Number: US-BAXTER-2012BAX000897

PATIENT
  Sex: Male

DRUGS (4)
  1. DIANEAL [Suspect]
     Indication: PERITONEAL DIALYSIS
     Route: 033
  2. COREG [Suspect]
     Route: 048
  3. PREDNISONE TAB [Suspect]
     Indication: ADVERSE DRUG REACTION
     Route: 048
  4. DIANEAL [Suspect]

REACTIONS (9)
  - ADVERSE DRUG REACTION [None]
  - PAIN [None]
  - FLUID RETENTION [None]
  - VOMITING [None]
  - PROCEDURAL PAIN [None]
  - PERIPHERAL ARTERIAL OCCLUSIVE DISEASE [None]
  - ABDOMINAL PAIN [None]
  - ASTHENIA [None]
  - BLOODY PERITONEAL EFFLUENT [None]
